FAERS Safety Report 10142946 (Version 2)
Quarter: 2014Q2

REPORT INFORMATION
  Report Type: Spontaneous
  Country: US (occurrence: US)
  Receive Date: 20140430
  Receipt Date: 20140530
  Transmission Date: 20141212
  Serious: Yes (Hospitalization, Other)
  Sender: FDA-Public Use
  Company Number: US-BAYER-2014-062939

PATIENT
  Age: 38 Year
  Sex: Female

DRUGS (12)
  1. YASMIN [Suspect]
     Dosage: UNK
     Dates: start: 20020713, end: 200208
  2. YAZ [Suspect]
  3. ZOLOFT [Concomitant]
  4. PROMETHEGAN [Concomitant]
  5. FUROSEMIDE AL [Concomitant]
  6. AUGMENTIN [Concomitant]
  7. CLOTRIMAZOLE [Concomitant]
  8. ZYPREXA [Concomitant]
  9. BUSPAR [Concomitant]
  10. BUSPIRONE [Concomitant]
  11. DIFLUCAN [Concomitant]
  12. CLONAZEPAM [Concomitant]

REACTIONS (21)
  - Deep vein thrombosis [Recovered/Resolved]
  - Pulmonary embolism [Recovered/Resolved]
  - Subdural haematoma [None]
  - Toxicity to various agents [None]
  - Pain [None]
  - Pain in extremity [Recovered/Resolved]
  - Injury [Recovered/Resolved]
  - General physical health deterioration [None]
  - Anxiety [None]
  - Emotional distress [None]
  - Nausea [Recovered/Resolved]
  - Malaise [None]
  - Thrombophlebitis superficial [None]
  - Cellulitis [None]
  - Asthenia [None]
  - Fatigue [None]
  - Thrombosis [None]
  - Unresponsive to stimuli [None]
  - Loss of consciousness [None]
  - Fall [None]
  - Peripheral venous disease [None]
